FAERS Safety Report 14128161 (Version 1)
Quarter: 2017Q4

REPORT INFORMATION
  Report Type: Spontaneous
  Country: US (occurrence: None)
  Receive Date: 20171025
  Receipt Date: 20171025
  Transmission Date: 20180321
  Serious: Yes (Life-Threatening, Hospitalization)
  Sender: FDA-Public Use
  Company Number: None

PATIENT
  Age: 75 Year
  Sex: Male
  Weight: 109.72 kg

DRUGS (2)
  1. WARFARIN [Suspect]
     Active Substance: WARFARIN
     Indication: DEEP VEIN THROMBOSIS
     Dates: start: 20000804, end: 20170826
  2. ASPIRIN. [Suspect]
     Active Substance: ASPIRIN
     Indication: CARDIOVASCULAR EVENT PROPHYLAXIS
     Route: 048
     Dates: start: 20050908, end: 20170827

REACTIONS (5)
  - Respiratory distress [None]
  - Brain herniation [None]
  - Mental status changes [None]
  - International normalised ratio increased [None]
  - Subdural haematoma [None]

NARRATIVE: CASE EVENT DATE: 20170827
